FAERS Safety Report 19252157 (Version 2)
Quarter: 2021Q3

REPORT INFORMATION
  Report Type: Report from Study
  Country: US (occurrence: US)
  Receive Date: 20210513
  Receipt Date: 20210924
  Transmission Date: 20211014
  Serious: No
  Sender: FDA-Public Use
  Company Number: US-SA-2021SA156712

PATIENT
  Sex: Male

DRUGS (1)
  1. DUPIXENT [Suspect]
     Active Substance: DUPILUMAB
     Indication: DERMATITIS ATOPIC
     Dosage: 600 MG, 1X
     Route: 058

REACTIONS (2)
  - Injection site erythema [Unknown]
  - COVID-19 [Unknown]
